FAERS Safety Report 15823266 (Version 3)
Quarter: 2019Q2

REPORT INFORMATION
  Report Type: Not Available
  Country: US (occurrence: US)
  Receive Date: 20190114
  Receipt Date: 20190612
  Transmission Date: 20190711
  Serious: No
  Sender: FDA-Public Use
  Company Number: US-NEUROCRINE BIOSCIENCES INC.-2019NBI00032

PATIENT
  Age: 71 Year
  Sex: Female

DRUGS (2)
  1. INGREZZA [Suspect]
     Active Substance: VALBENAZINE
     Route: 048
     Dates: start: 20181214
  2. INGREZZA [Suspect]
     Active Substance: VALBENAZINE
     Indication: TARDIVE DYSKINESIA
     Route: 048
     Dates: start: 20181206, end: 20181213

REACTIONS (6)
  - Somnolence [Unknown]
  - Tremor [Unknown]
  - Lethargy [Unknown]
  - Arthritis [Unknown]
  - Sedation [Unknown]
  - Fatigue [Unknown]

NARRATIVE: CASE EVENT DATE: 20181214
